FAERS Safety Report 17009907 (Version 2)
Quarter: 2020Q1

REPORT INFORMATION
  Report Type: Spontaneous
  Country: CA (occurrence: CA)
  Receive Date: 20191108
  Receipt Date: 20200110
  Transmission Date: 20200409
  Serious: Yes (Death, Other)
  Sender: FDA-Public Use
  Company Number: CA-PFIZER INC-2019480141

PATIENT
  Age: 75 Year

DRUGS (5)
  1. FLUOROURACIL. [Suspect]
     Active Substance: FLUOROURACIL
     Dosage: UNK, CYCLIC
  2. ELOXATIN [Suspect]
     Active Substance: OXALIPLATIN
     Dosage: UNK, CYCLIC
  3. AVASTIN [Suspect]
     Active Substance: BEVACIZUMAB
     Indication: COLORECTAL CANCER METASTATIC
     Dosage: UNK UNK, CYCLIC
  4. LEUCOVORIN. [Suspect]
     Active Substance: LEUCOVORIN
     Dosage: UNK, CYCLIC
  5. IRINOTECAN HCL [Suspect]
     Active Substance: IRINOTECAN HYDROCHLORIDE
     Dosage: UNK, CYCLIC

REACTIONS (1)
  - Neoplasm progression [Fatal]
